FAERS Safety Report 9836671 (Version 1)
Quarter: 2013Q4

REPORT INFORMATION
  Report Type: Spontaneous
  Country: US (occurrence: None)
  Receive Date: 20131121
  Receipt Date: 20131121
  Transmission Date: 20140711
  Serious: No
  Sender: FDA-Public Use
  Company Number: 1000047640

PATIENT
  Age: 60 Year
  Sex: Female

DRUGS (9)
  1. TUDORZA PRESSAIR [Suspect]
     Indication: ASTHMA
     Dosage: 400 MCG, 1 IN 1 D
     Route: 055
     Dates: start: 201306
  2. DIGOXIN [Concomitant]
  3. ADVAIR HFA [Concomitant]
  4. MAXAIR [Concomitant]
  5. ZAFIRLUKAST [Concomitant]
  6. ALBUTEROL [Concomitant]
  7. CELEBREX [Concomitant]
  8. VITAMIN B [Concomitant]
  9. PATADAY [Concomitant]

REACTIONS (4)
  - Oropharyngeal pain [None]
  - Dysphonia [None]
  - Oedema peripheral [None]
  - Off label use [None]
